FAERS Safety Report 16925887 (Version 4)
Quarter: 2019Q4

REPORT INFORMATION
  Report Type: Spontaneous
  Country: US (occurrence: US)
  Receive Date: 20191016
  Receipt Date: 20191220
  Transmission Date: 20200122
  Serious: Yes (Other)
  Sender: FDA-Public Use
  Company Number: US-PFIZER INC-2019447833

PATIENT
  Age: 81 Year
  Sex: Male
  Weight: 99.32 kg

DRUGS (1)
  1. XELJANZ XR [Suspect]
     Active Substance: TOFACITINIB CITRATE
     Indication: ARTHRITIS
     Dosage: 11 MG, 1X/DAY
     Dates: start: 20191007

REACTIONS (4)
  - Prostate cancer [Unknown]
  - Memory impairment [Unknown]
  - Deafness [Unknown]
  - Anosmia [Unknown]
